FAERS Safety Report 13075832 (Version 1)
Quarter: 2016Q4

REPORT INFORMATION
  Report Type: Spontaneous
  Country: US (occurrence: US)
  Receive Date: 20161229
  Receipt Date: 20161229
  Transmission Date: 20170207
  Serious: Yes (Other)
  Sender: FDA-Public Use
  Company Number: None

PATIENT
  Age: 39 Year
  Sex: Male
  Weight: 57.6 kg

DRUGS (1)
  1. SUNMARK CHILDRENS ALL DAY ALLERGY [Suspect]
     Active Substance: CETIRIZINE HYDROCHLORIDE
     Indication: HYPERSENSITIVITY
     Dosage: ?          QUANTITY:5 TABLET(S);?
     Route: 048
     Dates: start: 20161224, end: 20161225

REACTIONS (1)
  - Expired product administered [None]

NARRATIVE: CASE EVENT DATE: 20161224
